FAERS Safety Report 12667085 (Version 1)
Quarter: 2016Q3

REPORT INFORMATION
  Report Type: Spontaneous
  Country: AU (occurrence: None)
  Receive Date: 20160818
  Receipt Date: 20160818
  Transmission Date: 20161109
  Serious: Yes (Life-Threatening, Other)
  Sender: FDA-Public Use
  Company Number: None

PATIENT
  Age: 22 Year
  Sex: Male
  Weight: 50 kg

DRUGS (3)
  1. KEPPRA [Suspect]
     Active Substance: LEVETIRACETAM
     Indication: EPILEPSY
     Route: 048
  2. EPILIM [Concomitant]
     Active Substance: VALPROATE SODIUM
  3. KEPPRA [Suspect]
     Active Substance: LEVETIRACETAM
     Indication: PROPHYLAXIS
     Route: 048

REACTIONS (5)
  - Suicidal ideation [None]
  - Negative thoughts [None]
  - Anger [None]
  - Psychotic disorder [None]
  - Violence-related symptom [None]

NARRATIVE: CASE EVENT DATE: 20160801
